FAERS Safety Report 9612093 (Version 2)
Quarter: 2013Q4

REPORT INFORMATION
  Report Type: Spontaneous
  Country: US (occurrence: US)
  Receive Date: 20131010
  Receipt Date: 20131010
  Transmission Date: 20140711
  Serious: No
  Sender: FDA-Public Use
  Company Number: US-MYLANLABS-2012S1019158

PATIENT
  Age: 51 Year
  Sex: Female
  Weight: 90.72 kg

DRUGS (5)
  1. CARBIDOPA AND LEVODOPA ORALLY DISINTEGRATING TABLETS [Suspect]
     Indication: PARKINSON^S DISEASE
     Dosage: 12.5MG 10 TIMES A DAY
     Route: 048
     Dates: start: 2009
  2. AZILECT [Concomitant]
  3. REQUIP [Concomitant]
  4. PAXIL [Concomitant]
  5. CARBIDOPA AND LEVODOPA EXTENDED-RELEASE TABLETS [Concomitant]
     Route: 048

REACTIONS (2)
  - Drug effect decreased [Recovered/Resolved]
  - Parkinson^s disease [Recovered/Resolved]
